FAERS Safety Report 25903647 (Version 1)
Quarter: 2025Q4

REPORT INFORMATION
  Report Type: Report from Study
  Country: BR (occurrence: BR)
  Receive Date: 20251010
  Receipt Date: 20251010
  Transmission Date: 20260117
  Serious: Yes (Death)
  Sender: IPSEN BIOPHARMACEUTICALS, INC.
  Company Number: BR-IPSEN Group, Research and Development-2023-15025

PATIENT
  Age: 70 Year
  Sex: Male
  Weight: 57 kg

DRUGS (4)
  1. LANREOTIDE ACETATE [Suspect]
     Active Substance: LANREOTIDE ACETATE
     Indication: Neuroendocrine tumour
     Dosage: 1 SYRINGE EVERY 28 DAYS
     Route: 058
     Dates: start: 20220710
  2. LANREOTIDE ACETATE [Suspect]
     Active Substance: LANREOTIDE ACETATE
     Dosage: 1 SYRINGE EVERY 28 DAYS
     Route: 058
  3. LOSARTAN [Concomitant]
     Active Substance: LOSARTAN
     Indication: Hypertension
     Route: 048
  4. EVEROLIMUS [Concomitant]
     Active Substance: EVEROLIMUS
     Indication: Neuroendocrine tumour

REACTIONS (5)
  - Death [Fatal]
  - Treatment delayed [Unknown]
  - Treatment delayed [Unknown]
  - Inappropriate schedule of product administration [Unknown]
  - Inappropriate schedule of product administration [Unknown]

NARRATIVE: CASE EVENT DATE: 20230501
